FAERS Safety Report 9525980 (Version 1)
Quarter: 2013Q3

REPORT INFORMATION
  Report Type: Spontaneous
  Country: US (occurrence: US)
  Receive Date: 20130916
  Receipt Date: 20130916
  Transmission Date: 20140515
  Serious: No
  Sender: FDA-Public Use
  Company Number: US-009507513-1309USA000493

PATIENT
  Age: 48 Year
  Sex: Male
  Weight: 133.33 kg

DRUGS (9)
  1. VICTRELIS [Suspect]
     Indication: HEPATITIS C
     Dosage: 800 MG, TID (EVERY 7-9 HRS, START ON WEEK 5)
     Route: 048
  2. PEGASYS [Suspect]
     Indication: HEPATITIS C
     Dosage: PROCLICK
  3. REBETOL [Suspect]
     Indication: HEPATITIS C
     Route: 048
  4. TRAMADOL HYDROCHLORIDE [Concomitant]
     Route: 048
  5. GABAPENTIN [Concomitant]
     Route: 048
  6. INDOMETHACIN [Concomitant]
     Route: 048
  7. CARVEDILOL [Concomitant]
     Route: 048
  8. COLCRYS [Concomitant]
     Route: 048
  9. ULORIC [Concomitant]
     Route: 048

REACTIONS (4)
  - Nausea [Unknown]
  - Dysgeusia [Unknown]
  - Cough [Unknown]
  - Dyspnoea [Unknown]
